FAERS Safety Report 25964691 (Version 2)
Quarter: 2025Q4

REPORT INFORMATION
  Report Type: Spontaneous
  Country: US (occurrence: US)
  Receive Date: 20251027
  Receipt Date: 20251029
  Transmission Date: 20260117
  Serious: No
  Sender: PFIZER
  Company Number: US-PFIZER INC-PV202500123995

PATIENT
  Age: 90 Year
  Sex: Female
  Weight: 62.6 kg

DRUGS (2)
  1. RUXIENCE [Suspect]
     Active Substance: RITUXIMAB-PVVR
     Indication: Diffuse large B-cell lymphoma
     Dosage: 150 MG (500MG SINGLE DOSE VIAL; PRESCRIBED DOSE: 600MG EVERY 21 DAYS)
     Route: 042
     Dates: start: 20251017
  2. RUXIENCE [Suspect]
     Active Substance: RITUXIMAB-PVVR
     Dosage: 150 MG (100MG SINGLE DOSE VIAL; PRESCRIBED DOSE: 600MG EVERY 21 DAYS)
     Route: 042
     Dates: start: 20251017

REACTIONS (2)
  - Chills [Recovered/Resolved]
  - Back pain [Recovered/Resolved]

NARRATIVE: CASE EVENT DATE: 20251017
